FAERS Safety Report 6148607-8 (Version None)
Quarter: 2009Q2

REPORT INFORMATION
  Report Type: 
  Country: None (occurrence: None)
  Receive Date: 20090406
  Receipt Date: 20090406
  Transmission Date: 20091009
  Serious: No
  Sender: FDA-Public Use
  Company Number: None

PATIENT
  Sex: Male
  Weight: 91.6266 kg

DRUGS (1)
  1. LYRICA [Suspect]
     Indication: POST HERPETIC NEURALGIA
     Dosage: 100 MG QID PO
     Route: 048
     Dates: start: 20080901, end: 20090403

REACTIONS (1)
  - MEMORY IMPAIRMENT [None]
